FAERS Safety Report 10165953 (Version 2)
Quarter: 2014Q2

REPORT INFORMATION
  Report Type: Spontaneous
  Country: IT (occurrence: IT)
  Receive Date: 20140510
  Receipt Date: 20140521
  Transmission Date: 20141212
  Serious: Yes (Other)
  Sender: FDA-Public Use
  Company Number: IT-MYLANLABS-2014S1010279

PATIENT
  Age: 42 Year
  Sex: Male

DRUGS (1)
  1. ARKOLAMYL [Suspect]
     Indication: PRODUCT USED FOR UNKNOWN INDICATION
     Route: 048

REACTIONS (3)
  - Erectile dysfunction [Unknown]
  - Vertigo [Unknown]
  - Nuchal rigidity [Unknown]
